FAERS Safety Report 8250884-4 (Version None)
Quarter: 2012Q2

REPORT INFORMATION
  Report Type: 
  Country: None (occurrence: None)
  Receive Date: 20120402
  Receipt Date: 20120323
  Transmission Date: 20120825
  Serious: Yes (Other)
  Sender: FDA-Public Use
  Company Number: CN-PFIZER INC-2012076556

PATIENT
  Age: 73 Year
  Sex: Female

DRUGS (1)
  1. AXITINIB [Suspect]
     Indication: METASTATIC RENAL CELL CARCINOMA
     Dosage: 7 MG, 2X/DAY
     Route: 048
     Dates: start: 20091124, end: 20120214

REACTIONS (1)
  - CEREBRAL ISCHAEMIA [None]
